FAERS Safety Report 13360418 (Version 2)
Quarter: 2017Q2

REPORT INFORMATION
  Report Type: Report from Study
  Country: US (occurrence: US)
  Receive Date: 20170322
  Receipt Date: 20170419
  Transmission Date: 20170830
  Serious: Yes (Hospitalization)
  Sender: FDA-Public Use
  Company Number: US-JAZZ-2016-US-020653

PATIENT
  Sex: Male

DRUGS (23)
  1. LAMICTAL [Concomitant]
     Active Substance: LAMOTRIGINE
  2. ZYPREXA [Concomitant]
     Active Substance: OLANZAPINE
  3. NUVIGIL [Concomitant]
     Active Substance: ARMODAFINIL
  4. XYREM [Suspect]
     Active Substance: SODIUM OXYBATE
     Indication: NARCOLEPSY
     Dosage: 4.5 G, BID
     Route: 048
     Dates: start: 200810
  5. ROBINUL [Suspect]
     Active Substance: GLYCOPYRROLATE
     Indication: PRODUCT USED FOR UNKNOWN INDICATION
  6. TRAZODONE [Concomitant]
     Active Substance: TRAZODONE HYDROCHLORIDE
  7. LISINOPRIL. [Concomitant]
     Active Substance: LISINOPRIL
  8. TESTIM [Concomitant]
     Active Substance: TESTOSTERONE
  9. SUBOXONE [Concomitant]
     Active Substance: BUPRENORPHINE HYDROCHLORIDE\NALOXONE HYDROCHLORIDE
  10. ABILIFY [Concomitant]
     Active Substance: ARIPIPRAZOLE
  11. AMBIEN [Concomitant]
     Active Substance: ZOLPIDEM TARTRATE
  12. ANDROGEL [Concomitant]
     Active Substance: TESTOSTERONE
  13. TRILEPTAL [Concomitant]
     Active Substance: OXCARBAZEPINE
  14. NUEDEXTA [Concomitant]
     Active Substance: DEXTROMETHORPHAN HYDROBROMIDE\QUINIDINE SULFATE
  15. PROPRANOLOL [Concomitant]
     Active Substance: PROPRANOLOL HYDROCHLORIDE
  16. PROVIGIL [Concomitant]
     Active Substance: MODAFINIL
  17. CAPTOPRIL. [Concomitant]
     Active Substance: CAPTOPRIL
  18. VYVANSE [Concomitant]
     Active Substance: LISDEXAMFETAMINE DIMESYLATE
  19. NAMENDA [Concomitant]
     Active Substance: MEMANTINE HYDROCHLORIDE
  20. RISPERIDONE. [Concomitant]
     Active Substance: RISPERIDONE
  21. ADDERALL [Concomitant]
     Active Substance: AMPHETAMINE ASPARTATE\AMPHETAMINE SULFATE\DEXTROAMPHETAMINE SACCHARATE\DEXTROAMPHETAMINE SULFATE
  22. DEXILANT [Concomitant]
     Active Substance: DEXLANSOPRAZOLE
  23. MAXALT [Concomitant]
     Active Substance: RIZATRIPTAN BENZOATE

REACTIONS (5)
  - Serum serotonin decreased [Recovered/Resolved]
  - Gastrointestinal motility disorder [Recovered/Resolved]
  - Blood testosterone decreased [Unknown]
  - Hormone level abnormal [Unknown]
  - Feeling hot [Unknown]

NARRATIVE: CASE EVENT DATE: 2011
